FAERS Safety Report 12483122 (Version 3)
Quarter: 2017Q3

REPORT INFORMATION
  Report Type: Spontaneous
  Country: US (occurrence: US)
  Receive Date: 20160620
  Receipt Date: 20170712
  Transmission Date: 20171127
  Serious: No
  Sender: FDA-Public Use
  Company Number: US-ASTRAZENECA-2016SE50918

PATIENT
  Age: 23912 Day
  Sex: Female

DRUGS (2)
  1. TUDORZA PRESSAIR [Suspect]
     Active Substance: ACLIDINIUM BROMIDE
     Dosage: 1 PUFF TWICE A DAY
     Route: 055
  2. TUDORZA PRESSAIR [Suspect]
     Active Substance: ACLIDINIUM BROMIDE
     Dosage: 1 PUFF TWICE A DAY
     Route: 055
     Dates: start: 201604

REACTIONS (2)
  - Malaise [Unknown]
  - Device malfunction [Unknown]

NARRATIVE: CASE EVENT DATE: 20160503
